FAERS Safety Report 10764992 (Version 1)
Quarter: 2015Q1

REPORT INFORMATION
  Report Type: Spontaneous
  Country: US (occurrence: US)
  Receive Date: 20150205
  Receipt Date: 20150205
  Transmission Date: 20150721
  Serious: No
  Sender: FDA-Public Use
  Company Number: US-PFIZER INC-2015046720

PATIENT
  Age: 34 Year
  Sex: Male
  Weight: 77 kg

DRUGS (1)
  1. GABAPENTIN. [Suspect]
     Active Substance: GABAPENTIN
     Indication: RESTLESS LEGS SYNDROME
     Dosage: 600 MG, 4X/DAY
     Route: 048
     Dates: start: 2013, end: 2014

REACTIONS (5)
  - Pre-existing condition improved [Recovering/Resolving]
  - Irritable bowel syndrome [Recovering/Resolving]
  - Disease progression [Recovering/Resolving]
  - Therapeutic response unexpected [Recovering/Resolving]
  - Gastrointestinal hypermotility [Recovering/Resolving]

NARRATIVE: CASE EVENT DATE: 2013
